FAERS Safety Report 5869072-1 (Version None)
Quarter: 2008Q3

REPORT INFORMATION
  Report Type: 
  Country: None (occurrence: None)
  Receive Date: 20080903
  Receipt Date: 20080902
  Transmission Date: 20090109
  Serious: Yes (Hospitalization)
  Sender: FDA-Public Use
  Company Number: B0535369A

PATIENT
  Age: 85 Year
  Sex: Female
  Weight: 62 kg

DRUGS (5)
  1. BUSULPHAN [Suspect]
     Dosage: 2MG PER DAY
     Route: 048
     Dates: start: 20060118, end: 20071115
  2. WARFARIN SODIUM [Suspect]
     Dosage: 2.5MG PER DAY
     Route: 048
     Dates: start: 20031104, end: 20080215
  3. FUROSEMIDE [Concomitant]
     Dosage: 12.5MG THREE TIMES PER WEEK
     Dates: start: 20070724
  4. TELMISARTAN [Concomitant]
     Indication: HYPERTENSION
     Dosage: 80MG ALTERNATE DAYS
     Route: 048
     Dates: start: 20040430
  5. HYDROCHLOROTHIAZIDE [Concomitant]
     Indication: HYPERTENSION
     Dosage: 12.5MG ALTERNATE DAYS
     Route: 048
     Dates: start: 20040430

REACTIONS (1)
  - EPISTAXIS [None]
